FAERS Safety Report 20495353 (Version 1)
Quarter: 2022Q1

REPORT INFORMATION
  Report Type: Spontaneous
  Country: FR (occurrence: FR)
  Receive Date: 20220221
  Receipt Date: 20220221
  Transmission Date: 20220424
  Serious: Yes (Other)
  Sender: FDA-Public Use
  Company Number: None

PATIENT
  Age: 22 Year
  Sex: Female

DRUGS (8)
  1. PREGABALIN [Suspect]
     Active Substance: PREGABALIN
     Dosage: NOON AND EVENING
     Route: 048
     Dates: start: 2021
  2. CLORAZEPATE DIPOTASSIUM [Suspect]
     Active Substance: CLORAZEPATE DIPOTASSIUM
     Dosage: 10MG IN THE MORNING, 10MG AT NOON, 20MG IN THE EVENING, 10MG AT BEDTIME
     Route: 048
     Dates: start: 2021
  3. COCAINE [Suspect]
     Active Substance: COCAINE
     Dosage: 4 TREATMENT LINES
     Route: 045
     Dates: start: 20210905, end: 20210905
  4. PIPAMPERONE [Suspect]
     Active Substance: PIPAMPERONE
     Dosage: 20MG MORNING, 20MG NOON, 40MG EVENING
     Route: 048
     Dates: start: 2021
  5. TRIMEPRAZINE [Suspect]
     Active Substance: TRIMEPRAZINE
     Dosage: 20 MG, 1X/DAY
     Route: 048
     Dates: start: 2021
  6. BUSPIRONE [Suspect]
     Active Substance: BUSPIRONE HYDROCHLORIDE
     Dosage: 10MG MORNING, 10MG NOON, 20 MG EVENING
     Route: 048
     Dates: start: 2021
  7. ARIPIPRAZOLE [Suspect]
     Active Substance: ARIPIPRAZOLE
     Dosage: 10 MG, 2X/DAY
     Route: 048
     Dates: start: 2021
  8. LITHIUM [Suspect]
     Active Substance: LITHIUM
     Dosage: EVENING
     Route: 048
     Dates: start: 2021

REACTIONS (3)
  - Depressed level of consciousness [Recovered/Resolved]
  - Drug abuse [Not Recovered/Not Resolved]
  - Poisoning deliberate [Unknown]

NARRATIVE: CASE EVENT DATE: 20210905
